FAERS Safety Report 21584002 (Version 2)
Quarter: 2022Q4

REPORT INFORMATION
  Report Type: Spontaneous
  Country: US (occurrence: US)
  Receive Date: 20221111
  Receipt Date: 20221205
  Transmission Date: 20230112
  Serious: No
  Sender: FDA-Public Use
  Company Number: US-LUPIN PHARMACEUTICALS INC.-2022-13159

PATIENT

DRUGS (1)
  1. ALBUTEROL SULFATE [Suspect]
     Active Substance: ALBUTEROL SULFATE
     Indication: Asthma
     Dosage: UNK (2 PUFFS EVERY 4 HOURS UP TO 12 PUFFS A DAY)
     Dates: start: 20221029

REACTIONS (2)
  - Incorrect dose administered by device [Unknown]
  - No adverse event [Unknown]
